FAERS Safety Report 19200131 (Version 3)
Quarter: 2021Q2

REPORT INFORMATION
  Report Type: Spontaneous
  Country: US (occurrence: US)
  Receive Date: 20210430
  Receipt Date: 20210604
  Transmission Date: 20210717
  Serious: Yes (Other)
  Sender: FDA-Public Use
  Company Number: US-ASTRAZENECA-2021A351461

PATIENT
  Age: 83 Year
  Sex: Female

DRUGS (5)
  1. BYDUREON [Suspect]
     Active Substance: EXENATIDE
     Route: 065
  2. BYDUREON BCISE [Suspect]
     Active Substance: EXENATIDE
     Route: 065
     Dates: start: 202008
  3. OZEMPIC [Concomitant]
     Active Substance: SEMAGLUTIDE
  4. INSULIN [Concomitant]
     Active Substance: INSULIN NOS
     Dosage: 5 TIMES A DAY
  5. INSULIN [Concomitant]
     Active Substance: INSULIN NOS
     Dosage: 5 TIMES A DAY

REACTIONS (7)
  - Glycosylated haemoglobin increased [Not Recovered/Not Resolved]
  - Orthostatic hypotension [Recovered/Resolved]
  - Device leakage [Unknown]
  - Feeling abnormal [Unknown]
  - Product dose omission issue [Unknown]
  - Wrong technique in product usage process [Unknown]
  - Blood glucose increased [Unknown]

NARRATIVE: CASE EVENT DATE: 2020
